FAERS Safety Report 8901893 (Version 1)
Quarter: 2012Q4

REPORT INFORMATION
  Report Type: Spontaneous
  Country: US (occurrence: None)
  Receive Date: 20121109
  Receipt Date: 20121109
  Transmission Date: 20130627
  Serious: Yes (Death, Hospitalization)
  Sender: FDA-Public Use
  Company Number: None

PATIENT
  Age: 78 Year
  Sex: Male
  Weight: 80.2 kg

DRUGS (1)
  1. PRADAXA, 150 MG [Suspect]
     Indication: CEREBROVASCULAR ACCIDENT PROPHYLAXIS
     Route: 048
     Dates: start: 20120912, end: 20121004

REACTIONS (7)
  - Gastrointestinal haemorrhage [None]
  - Incorrect dose administered [None]
  - Hypovolaemic shock [None]
  - Hypotension [None]
  - Hyperkalaemia [None]
  - Coagulopathy [None]
  - Continuous haemodiafiltration [None]
